FAERS Safety Report 11037816 (Version 1)
Quarter: 2015Q2

REPORT INFORMATION
  Report Type: Spontaneous
  Country: US (occurrence: None)
  Receive Date: 20150415
  Receipt Date: 20150415
  Transmission Date: 20150821
  Serious: Yes (Disabling)
  Sender: FDA-Public Use
  Company Number: None

PATIENT
  Age: 31 Year
  Sex: Female
  Weight: 52.16 kg

DRUGS (1)
  1. CLINDAMYCIN [Suspect]
     Active Substance: CLINDAMYCIN\CLINDAMYCIN PHOSPHATE
     Indication: MASTITIS
     Route: 048
     Dates: start: 20150129, end: 20150210

REACTIONS (3)
  - Haematochezia [None]
  - Clostridium difficile infection [None]
  - Diarrhoea [None]

NARRATIVE: CASE EVENT DATE: 20150218
